FAERS Safety Report 17274876 (Version 2)
Quarter: 2020Q4

REPORT INFORMATION
  Report Type: Spontaneous
  Country: US (occurrence: US)
  Receive Date: 20200116
  Receipt Date: 20201006
  Transmission Date: 20210113
  Serious: Yes (Death, Other)
  Sender: FDA-Public Use
  Company Number: US-AMGEN-USASP2020005618

PATIENT

DRUGS (8)
  1. EPOETIN ALFA [Suspect]
     Active Substance: ERYTHROPOIETIN
     Indication: THROMBOCYTOSIS
  2. DARBEPOETIN ALFA [Suspect]
     Active Substance: DARBEPOETIN ALFA
     Indication: MYELOPROLIFERATIVE NEOPLASM
  3. EPOETIN ALFA [Suspect]
     Active Substance: ERYTHROPOIETIN
     Indication: SIDEROBLASTIC ANAEMIA
  4. DARBEPOETIN ALFA [Suspect]
     Active Substance: DARBEPOETIN ALFA
     Indication: THROMBOCYTOSIS
  5. EPOETIN ALFA [Suspect]
     Active Substance: ERYTHROPOIETIN
     Indication: MYELOPROLIFERATIVE NEOPLASM
  6. EPOETIN ALFA [Suspect]
     Active Substance: ERYTHROPOIETIN
     Indication: MYELODYSPLASTIC SYNDROME
     Dosage: UNK
     Route: 065
  7. DARBEPOETIN ALFA [Suspect]
     Active Substance: DARBEPOETIN ALFA
     Indication: MYELODYSPLASTIC SYNDROME
     Dosage: UNK
     Route: 065
  8. DARBEPOETIN ALFA [Suspect]
     Active Substance: DARBEPOETIN ALFA
     Indication: SIDEROBLASTIC ANAEMIA

REACTIONS (11)
  - Death [Fatal]
  - Embolism venous [Unknown]
  - Transformation to acute myeloid leukaemia [Fatal]
  - Hypertension [Unknown]
  - Haemoglobin decreased [Unknown]
  - Adverse event [Unknown]
  - Splenic infarction [Unknown]
  - Ischaemic stroke [Unknown]
  - Platelet count decreased [Unknown]
  - Platelet count increased [Unknown]
  - Drug ineffective for unapproved indication [Unknown]
